FAERS Safety Report 4941216-5 (Version None)
Quarter: 2006Q1

REPORT INFORMATION
  Report Type: 
  Country: None (occurrence: None)
  Receive Date: 20060310
  Receipt Date: 20060310
  Transmission Date: 20060701
  Serious: No
  Sender: FDA-Public Use
  Company Number: None

PATIENT
  Age: 81 Year
  Sex: Male

DRUGS (1)
  1. VYTORIN [Suspect]
     Indication: HYPERLIPIDAEMIA
     Dosage: 5/40MG  DAILY  PO
     Route: 048
     Dates: start: 20051006, end: 20051109

REACTIONS (3)
  - ASTHENIA [None]
  - DRUG DOSE OMISSION [None]
  - MYALGIA [None]
